FAERS Safety Report 5419497-3 (Version None)
Quarter: 2007Q3

REPORT INFORMATION
  Report Type: 
  Country: None (occurrence: None)
  Receive Date: 20070817
  Receipt Date: 20070817
  Transmission Date: 20080115
  Serious: Yes (Hospitalization)
  Sender: FDA-Public Use
  Company Number: None

PATIENT
  Age: 48 Year
  Sex: Male
  Weight: 95.2554 kg

DRUGS (2)
  1. METFORMIN HCL [Suspect]
     Indication: DIABETES MELLITUS
     Dosage: METFORMIN DAILY PO
     Route: 048
     Dates: start: 20020101, end: 20031201
  2. AVANDIA [Suspect]
     Indication: DIABETES MELLITUS
     Dosage: AVANDIA DAILY PO
     Route: 048
     Dates: start: 20020101, end: 20031201

REACTIONS (9)
  - CARDIAC DISORDER [None]
  - CORONARY ARTERY OCCLUSION [None]
  - DIALYSIS [None]
  - HYPOTONIA [None]
  - LACTIC ACIDOSIS [None]
  - LETHARGY [None]
  - RENAL FAILURE [None]
  - SKIN DISCOLOURATION [None]
  - WEIGHT DECREASED [None]
